FAERS Safety Report 25981724 (Version 4)
Quarter: 2025Q4

REPORT INFORMATION
  Report Type: Report from Study
  Country: US (occurrence: US)
  Receive Date: 20251031
  Receipt Date: 20251225
  Transmission Date: 20260117
  Serious: Yes (Hospitalization, Other)
  Sender: UNITED THERAPEUTICS
  Company Number: US-UNITED THERAPEUTICS-UNT-2025-021840

PATIENT
  Age: 55 Year
  Sex: Female

DRUGS (14)
  1. TREPROSTINIL SODIUM [Suspect]
     Active Substance: TREPROSTINIL SODIUM
     Indication: Pulmonary arterial hypertension
     Dosage: 0.030 ?G/KG, CONTINUING
     Route: 041
  2. TREPROSTINIL SODIUM [Suspect]
     Active Substance: TREPROSTINIL SODIUM
     Dosage: 0.032 ?G/KG, CONTINUING
     Route: 041
  3. TREPROSTINIL SODIUM [Suspect]
     Active Substance: TREPROSTINIL SODIUM
     Dosage: 0.034 ?G/KG, CONTINUING
     Route: 041
  4. TREPROSTINIL SODIUM [Suspect]
     Active Substance: TREPROSTINIL SODIUM
     Dosage: 0.036 ?G/KG, CONTINUING
     Route: 041
  5. TREPROSTINIL SODIUM [Suspect]
     Active Substance: TREPROSTINIL SODIUM
     Dosage: 0.04 ?G/KG, CONTINUING
     Route: 041
  6. TREPROSTINIL SODIUM [Suspect]
     Active Substance: TREPROSTINIL SODIUM
     Dosage: UNK, CONTINUING
     Route: 041
  7. TYLENOL [Suspect]
     Active Substance: ACETAMINOPHEN
     Indication: Headache
     Dosage: UNK, PRN (AS NEEDED)
  8. TYLENOL [Suspect]
     Active Substance: ACETAMINOPHEN
     Indication: Pain
  9. ADVIL [Suspect]
     Active Substance: IBUPROFEN
     Indication: Headache
     Dosage: UNK
  10. WINREVAIR [Suspect]
     Active Substance: SOTATERCEPT-CSRK
     Indication: Product used for unknown indication
     Dosage: UNK
  11. WINREVAIR [Suspect]
     Active Substance: SOTATERCEPT-CSRK
     Dosage: UNK
     Dates: start: 20250617, end: 20250617
  12. AMBRISENTAN [Concomitant]
     Active Substance: AMBRISENTAN
     Indication: Product used for unknown indication
     Dosage: UNK
  13. PERCOCET [Concomitant]
     Active Substance: ACETAMINOPHEN\OXYCODONE HYDROCHLORIDE
     Indication: Headache
     Dosage: UNK
  14. TOPAMAX [Concomitant]
     Active Substance: TOPIRAMATE
     Indication: Headache
     Dosage: UNK

REACTIONS (29)
  - Contusion [Unknown]
  - Migraine [Not Recovered/Not Resolved]
  - Patient-device incompatibility [Recovered/Resolved]
  - Device dislocation [Recovered/Resolved]
  - Pulmonary arterial hypertension [Unknown]
  - Epistaxis [Unknown]
  - Eye contusion [Unknown]
  - Injection site irritation [Unknown]
  - Injection site vesicles [Unknown]
  - Skin fissures [Unknown]
  - Injection site haemorrhage [Unknown]
  - Injection site warmth [Unknown]
  - Injection site discharge [Unknown]
  - Injection site scab [Unknown]
  - Sensitive skin [Unknown]
  - Illness [Unknown]
  - Pain [Unknown]
  - Therapy non-responder [Unknown]
  - Overdose [Unknown]
  - Pain in extremity [Unknown]
  - Oxygen consumption increased [Unknown]
  - General physical health deterioration [Unknown]
  - Chest pain [Not Recovered/Not Resolved]
  - Fatigue [Unknown]
  - Dizziness postural [Unknown]
  - Joint swelling [Unknown]
  - Abdominal distension [Unknown]
  - Insomnia [Unknown]
  - Drug intolerance [Unknown]

NARRATIVE: CASE EVENT DATE: 20250501
